FAERS Safety Report 25634397 (Version 1)
Quarter: 2025Q3

REPORT INFORMATION
  Report Type: Spontaneous
  Country: US (occurrence: US)
  Receive Date: 20250801
  Receipt Date: 20250801
  Transmission Date: 20251020
  Serious: No
  Sender: Haleon PLC
  Company Number: US-HALEON-2255662

PATIENT
  Sex: Female

DRUGS (1)
  1. FLONASE ALLERGY RELIEF [Suspect]
     Active Substance: FLUTICASONE PROPIONATE
     Indication: Ear infection
     Dates: start: 20250726, end: 20250730

REACTIONS (5)
  - Swollen tongue [Unknown]
  - Product use in unapproved indication [Unknown]
  - Ageusia [Unknown]
  - Insomnia [Unknown]
  - Sinusitis [Unknown]

NARRATIVE: CASE EVENT DATE: 20250729
